FAERS Safety Report 18624708 (Version 2)
Quarter: 2021Q1

REPORT INFORMATION
  Report Type: Spontaneous
  Country: US (occurrence: US)
  Receive Date: 20201216
  Receipt Date: 20210318
  Transmission Date: 20210419
  Serious: Yes (Hospitalization)
  Sender: FDA-Public Use
  Company Number: US-BRISTOL-MYERS SQUIBB COMPANY-BMS-2020-107552

PATIENT
  Age: 69 Year
  Sex: Male

DRUGS (2)
  1. ORENCIA [Suspect]
     Active Substance: ABATACEPT
     Indication: PRODUCT USED FOR UNKNOWN INDICATION
     Dosage: 125 MILLIGRAM, QWK ( INJECT 125MG/MI (1 SYRINGE) SUBCUTANEOUSLY ONCE A WEEK)
     Route: 058
  2. ORENCIA [Suspect]
     Active Substance: ABATACEPT
     Indication: PRODUCT USED FOR UNKNOWN INDICATION
     Dosage: 125 MILLIGRAM, QWK ( INJECT 125MG/MI (1 SYRINGE) SUBCUTANEOUSLY ONCE A WEEK)
     Route: 058

REACTIONS (2)
  - Hospitalisation [Unknown]
  - Weight increased [Unknown]

NARRATIVE: CASE EVENT DATE: 202010
